FAERS Safety Report 25191418 (Version 1)
Quarter: 2025Q2

REPORT INFORMATION
  Report Type: Spontaneous
  Country: US (occurrence: None)
  Receive Date: 20250411
  Receipt Date: 20250411
  Transmission Date: 20250716
  Serious: Yes (Disabling)
  Sender: FDA-CTU
  Company Number: None

PATIENT
  Age: 57 Year
  Sex: Female
  Weight: 85.5 kg

DRUGS (3)
  1. TIZANIDINE [Suspect]
     Active Substance: TIZANIDINE
     Indication: Muscle spasms
     Dosage: 60 TABLET(S) TWICE A DAY ORAL
     Route: 048
     Dates: start: 20250410, end: 20250410
  2. OMEPRAZOLE [Concomitant]
     Active Substance: OMEPRAZOLE
  3. VITAMINS [Concomitant]
     Active Substance: VITAMINS

REACTIONS (6)
  - Hallucination [None]
  - Throat tightness [None]
  - Gait inability [None]
  - Dysstasia [None]
  - Fall [None]
  - Joint injury [None]

NARRATIVE: CASE EVENT DATE: 20250410
